FAERS Safety Report 10224947 (Version 1)
Quarter: 2014Q2

REPORT INFORMATION
  Report Type: Report from Study
  Country: US (occurrence: US)
  Receive Date: 20140609
  Receipt Date: 20140609
  Transmission Date: 20141212
  Serious: Yes (Hospitalization)
  Sender: FDA-Public Use
  Company Number: US-BRISTOL-MYERS SQUIBB COMPANY-20882254

PATIENT
  Age: 72 Year
  Sex: Female

DRUGS (3)
  1. ABATACEPT SUBQ INJECTION 125MG/ML [Suspect]
     Route: 058
  2. METHOTREXATE [Suspect]
  3. PREDNISONE [Suspect]

REACTIONS (1)
  - Chest discomfort [Unknown]
